FAERS Safety Report 8647943 (Version 2)
Quarter: 2012Q4

REPORT INFORMATION
  Report Type: 
  Country: JP (occurrence: JP)
  Receive Date: 20120703
  Receipt Date: 20120906
  Transmission Date: 20130627
  Serious: Yes (Hospitalization, Other)
  Sender: FDA-Public Use
  Company Number: JP-PFIZER INC-2012156175

PATIENT
  Age: 70 Year
  Sex: Female
  Weight: 54 kg

DRUGS (14)
  1. LYRICA [Suspect]
     Indication: POST HERPETIC NEURALGIA
     Dosage: 75 mg, 2x/day
     Route: 048
     Dates: start: 20110909, end: 20111005
  2. LYRICA [Suspect]
     Indication: PAIN IN EXTREMITY
     Dosage: 150 mg in the morning and 75 mg in the evening
     Route: 048
     Dates: start: 20111006, end: 20120201
  3. LYRICA [Suspect]
     Dosage: 150 mg, 2x/day
     Route: 048
     Dates: start: 20120202, end: 20120207
  4. SENNOSIDE A [Concomitant]
     Indication: CONSTIPATION
     Dosage: 36 mg, 1x/day
     Route: 048
     Dates: start: 20110804, end: 20120209
  5. VOLTAREN [Concomitant]
     Indication: PAIN IN EXTREMITY
     Dosage: 37.5 mg, 2x/day
     Route: 048
     Dates: start: 20090714, end: 20120209
  6. WYPAX [Concomitant]
     Indication: ANXIETY
     Dosage: 0.5 mg, 2x/day
     Route: 048
     Dates: start: 20110303
  7. TAKEPRON [Concomitant]
     Indication: ABDOMINAL PAIN UPPER
     Dosage: 15 mg, 1x/day
     Route: 048
     Dates: start: 20110321, end: 20120209
  8. LIVALO [Concomitant]
     Indication: HYPERLIPIDAEMIA
     Dosage: 1 mg, 1x/day
     Route: 048
     Dates: start: 20110321, end: 20120209
  9. BLOPRESS [Concomitant]
     Indication: HYPERTENSION
     Dosage: 8 mg, 1x/day
     Route: 048
     Dates: start: 20110321, end: 20120209
  10. SEROQUEL [Concomitant]
     Indication: INSOMNIA
     Dosage: 25 mg, 3x/day
     Route: 048
     Dates: start: 20110203
  11. SEROQUEL [Concomitant]
     Indication: ANXIETY
     Dosage: 200 mg, 1x/day
     Route: 048
     Dates: start: 20110609
  12. REFLEX ^BOOTS^ [Concomitant]
     Indication: DEPRESSION
     Dosage: 45 mg, 1x/day
     Route: 048
     Dates: start: 20091027
  13. RIVOTRIL [Concomitant]
     Indication: ANXIETY
     Dosage: 1.5 mg, 1x/day
     Route: 048
     Dates: start: 20090714
  14. MYSLEE [Concomitant]
     Indication: INSOMNIA
     Dosage: 10 mg, 1x/day
     Route: 048
     Dates: start: 20090714

REACTIONS (4)
  - Pneumonia [Recovered/Resolved]
  - Somnolence [Recovered/Resolved]
  - Asthenia [Recovered/Resolved]
  - Ileus [Recovered/Resolved]
